FAERS Safety Report 6946590-6 (Version None)
Quarter: 2010Q3

REPORT INFORMATION
  Report Type: 
  Country: None (occurrence: None)
  Receive Date: 20100824
  Receipt Date: 20100808
  Transmission Date: 20110219
  Serious: Yes (Hospitalization)
  Sender: FDA-Public Use
  Company Number: US-JNJFOC-20100803689

PATIENT
  Age: 49 Year
  Sex: Male
  Weight: 71.3 kg

DRUGS (15)
  1. DECITABINE (DECITABINE) LYOPHILIZED POWDER [Suspect]
     Indication: COLORECTAL CANCER
     Dosage: 45 MG/M2, INTRAVENOUS
     Route: 042
     Dates: start: 20100605, end: 20100617
  2. PANITUMUMAB (PANITUMUMAB) UNSPECIFIED [Suspect]
     Indication: COLORECTAL CANCER
     Dosage: 6 MG/KG, INTRAVENOUS
     Route: 042
     Dates: start: 20100513, end: 20100624
  3. CYCLOBENZAPRINE (CYCLOBENZAPRINE) UNSPECIFIED [Concomitant]
  4. DICYCLOMINE (DICYCLOVERINE) UNSPECIFIED [Concomitant]
  5. DOCUSATE SODIUM (DOCUSATE SODIUM) UNSPECIFIED [Concomitant]
  6. DOXYCYCLINE (DOXYCYCLINE) UNSPECIFIED [Concomitant]
  7. LEXAPRO (ESCITALOPRAM OXALATE) UNSPECIFIED [Concomitant]
  8. LOVENOX (ENOXAPARIN SODIUM) UNSPECIFIED [Concomitant]
  9. LUNESTA (ESZOPICLONE) UNSPECIFIED [Concomitant]
  10. MIRALAX (MACROGOL) UNSPECIFIED [Concomitant]
  11. NEXIUM (ESOMEPRAZOLE MAGNESIUM) UNSPECIFIED [Concomitant]
  12. OXYCODONE (OXYCODONE) UNSPECIFIED [Concomitant]
  13. OXYCONTIN (OXYCODONE HYDROCHLORIDE) UNSPECIFIED [Concomitant]
  14. RITALIN (METHYLPHENIDATE HYDROCHLORIDE) UNSPECIFIED [Concomitant]
  15. COUMADIN [Concomitant]

REACTIONS (12)
  - ANAEMIA [None]
  - BILIARY DILATATION [None]
  - DEEP VEIN THROMBOSIS [None]
  - DYSPNOEA [None]
  - HEPATIC LESION [None]
  - HEPATIC VEIN OCCLUSION [None]
  - HYPOXIA [None]
  - IRON DEFICIENCY [None]
  - MALIGNANT PLEURAL EFFUSION [None]
  - MEAN CELL VOLUME DECREASED [None]
  - METASTASES TO PLEURA [None]
  - SINUS TACHYCARDIA [None]
